FAERS Safety Report 12253980 (Version 1)
Quarter: 2016Q2

REPORT INFORMATION
  Report Type: Spontaneous
  Country: US (occurrence: US)
  Receive Date: 20160411
  Receipt Date: 20160411
  Transmission Date: 20160815
  Serious: Yes (Other)
  Sender: FDA-Public Use
  Company Number: US-TEVA-649461USA

PATIENT
  Sex: Female

DRUGS (2)
  1. MONTELUKAST [Suspect]
     Active Substance: MONTELUKAST SODIUM
     Route: 065
  2. TRAMADOL. [Suspect]
     Active Substance: TRAMADOL
     Dosage: 50 MILLIGRAM DAILY;

REACTIONS (7)
  - Palpitations [Unknown]
  - Product substitution issue [Unknown]
  - Cardiac flutter [Unknown]
  - Nightmare [Unknown]
  - Hot flush [Unknown]
  - Drug ineffective [Unknown]
  - Adverse event [Unknown]
